FAERS Safety Report 19437064 (Version 1)
Quarter: 2021Q2

REPORT INFORMATION
  Report Type: Spontaneous
  Country: US (occurrence: US)
  Receive Date: 20210619
  Receipt Date: 20210619
  Transmission Date: 20210717
  Serious: Yes (Hospitalization)
  Sender: FDA-Public Use
  Company Number: US-AUROBINDO-08-AUR-01823

PATIENT
  Age: 55 Year
  Sex: Male

DRUGS (1)
  1. AMOXICILLIN 500MG [Suspect]
     Active Substance: AMOXICILLIN
     Indication: DENTAL OPERATION
     Dosage: 1 DOSAGE FORM
     Route: 048

REACTIONS (1)
  - Meningitis aseptic [Recovered/Resolved]
